FAERS Safety Report 8025118-6 (Version None)
Quarter: 2011Q4

REPORT INFORMATION
  Report Type: 
  Country: None (occurrence: None)
  Receive Date: 20111130
  Receipt Date: 20101108
  Transmission Date: 20120403
  Serious: Yes (Disabling, Other)
  Sender: FDA-Public Use
  Company Number: 748684

PATIENT
  Age: 30 Year
  Sex: Male
  Weight: 83.91 kg

DRUGS (2)
  1. MARCAINE [Suspect]
     Indication: PRODUCT USED FOR UNKNOWN INDICATION
     Dosage: 125 CC, CONTINUOUS INFUSION INTRA-ARTICULAR
     Route: 014
     Dates: start: 20070228
  2. LACTATED RINGER'S IRRIGATION, FLEXIBLE IRRIGATION CONTAINER (LACTATED [Concomitant]

REACTIONS (1)
  - CHONDROLYSIS [None]
